FAERS Safety Report 9758102 (Version 1)
Quarter: 2013Q4

REPORT INFORMATION
  Report Type: Spontaneous
  Country: FR (occurrence: FR)
  Receive Date: 20131216
  Receipt Date: 20131216
  Transmission Date: 20140711
  Serious: Yes (Life-Threatening, Hospitalization)
  Sender: FDA-Public Use
  Company Number: FR-BAYER-2013-149849

PATIENT
  Age: 79 Year
  Sex: Female

DRUGS (6)
  1. STIVARGA [Suspect]
     Indication: RECTAL ADENOCARCINOMA
     Dosage: UNK
     Route: 048
     Dates: start: 20131010, end: 20131027
  2. INEXIUM [Concomitant]
  3. ATACAND [CANDESARTAN CILEXETIL] [Concomitant]
  4. OXALIPLATIN [Concomitant]
     Indication: CHEMOTHERAPY
     Dosage: UNK
     Dates: start: 20131119
  5. CAPECITABINE [Concomitant]
     Indication: CHEMOTHERAPY
     Dosage: UNK
     Dates: start: 20131119
  6. BEVACIZUMAB [Concomitant]
     Indication: CHEMOTHERAPY
     Dosage: UNK
     Dates: start: 20131119

REACTIONS (2)
  - Hypertensive crisis [Recovered/Resolved]
  - Headache [None]
